FAERS Safety Report 4596402-3 (Version None)
Quarter: 2005Q1

REPORT INFORMATION
  Report Type: 
  Country: None (occurrence: None)
  Receive Date: 20050302
  Receipt Date: 20050221
  Transmission Date: 20050727
  Serious: Yes (Other)
  Sender: FDA-Public Use
  Company Number: US-JNJFOC-20050205687

PATIENT
  Sex: Female

DRUGS (1)
  1. LEVAQUIN [Suspect]
     Indication: DRUG USE FOR UNKNOWN INDICATION
     Route: 049
     Dates: start: 20050207, end: 20050211

REACTIONS (9)
  - AGEUSIA [None]
  - ANOSMIA [None]
  - DIZZINESS [None]
  - FATIGUE [None]
  - FUNGAL INFECTION [None]
  - HYPOAESTHESIA ORAL [None]
  - NAUSEA [None]
  - SWOLLEN TONGUE [None]
  - TINNITUS [None]
